FAERS Safety Report 10567344 (Version 3)
Quarter: 2015Q2

REPORT INFORMATION
  Report Type: Report from Study
  Country: IT (occurrence: IT)
  Receive Date: 20141106
  Receipt Date: 20150406
  Transmission Date: 20150821
  Serious: Yes (Other)
  Sender: FDA-Public Use
  Company Number: IT-ROCHE-1485678

PATIENT
  Age: 6 Year
  Sex: Male

DRUGS (2)
  1. PULMOZYME [Suspect]
     Active Substance: DORNASE ALFA
     Indication: RESPIRATORY FAILURE
     Route: 055
     Dates: start: 2012, end: 2012
  2. PULMOZYME [Suspect]
     Active Substance: DORNASE ALFA
     Route: 055

REACTIONS (2)
  - Respiratory failure [Recovering/Resolving]
  - Off label use [Unknown]
